FAERS Safety Report 7890413 (Version 4)
Quarter: 2013Q1

REPORT INFORMATION
  Report Type: Spontaneous
  Country: JP (occurrence: JP)
  Receive Date: 20110408
  Receipt Date: 20130118
  Transmission Date: 20140127
  Serious: Yes (Hospitalization)
  Sender: FDA-Public Use
  Company Number: JP-AMGEN-JPNSP2011017514

PATIENT
  Age: 52 Year
  Sex: Male

DRUGS (20)
  1. REGPARA [Suspect]
     Indication: HYPERPARATHYROIDISM SECONDARY
     Dosage: 25 MG, QD
     Route: 048
     Dates: start: 200906
  2. REGPARA [Suspect]
     Dosage: 50 MG, QD
     Route: 048
  3. REGPARA [Suspect]
     Route: 048
     Dates: start: 20101120
  4. VITAMIN D /00107901/ [Concomitant]
     Indication: HYPERPARATHYROIDISM SECONDARY
     Route: 042
  5. RIVOTRIL [Concomitant]
     Dosage: 1 MG, QD
     Route: 048
  6. CALTAN [Concomitant]
     Indication: HYPERPHOSPHATAEMIA
     Dosage: 1 G, QD
     Route: 048
  7. RENAGEL                            /01459901/ [Concomitant]
     Indication: HYPERPHOSPHATAEMIA
     Dosage: 1.5 G, TID
     Route: 048
  8. PLETAAL [Concomitant]
     Indication: SHUNT OCCLUSION
     Dosage: 100 MG, BID
     Route: 048
  9. BONALON                            /01220301/ [Concomitant]
     Indication: OSTEOPOROSIS
     Dosage: 35 MG, QWK
     Route: 048
  10. GLAKAY [Concomitant]
     Indication: SHUNT OCCLUSION
     Dosage: 45 MG, TID
     Route: 048
  11. NU-LOTAN [Concomitant]
     Indication: HYPERTENSION
     Dosage: 50 MG, QD
     Route: 048
  12. IRRIBOW [Concomitant]
     Indication: DIARRHOEA
     Dosage: 5 MUG, QD
     Route: 048
  13. SELOKEN                            /00376902/ [Concomitant]
     Indication: HYPERTENSION
     Dosage: 20 MG, QD
     Route: 048
  14. PARIET [Concomitant]
     Indication: GASTRIC ULCER
     Dosage: 10 MG, QD
     Route: 048
  15. OXAROL [Concomitant]
     Indication: HYPERPARATHYROIDISM SECONDARY
     Dosage: 5 MG, 3 TIMES/WK
     Route: 040
  16. VITAMIN PREPARATIONS [Concomitant]
     Indication: HYPERPARATHYROIDISM SECONDARY
     Route: 042
  17. RENAGEL [Concomitant]
     Indication: HYPERPHOSPHATAEMIA
     Route: 048
  18. BONALON 35MG [Concomitant]
     Indication: OSTEOPOROSIS
     Route: 048
  19. SELOKEN [Concomitant]
     Indication: HYPERTENSION
     Route: 048
  20. VITAMIN A, D AND PREPARATIONS [Concomitant]
     Indication: HYPERPARATHYROIDISM SECONDARY
     Route: 042

REACTIONS (1)
  - Parathyroid haemorrhage [Recovered/Resolved]
